FAERS Safety Report 7906314-2 (Version None)
Quarter: 2011Q4

REPORT INFORMATION
  Report Type: 
  Country: None (occurrence: None)
  Receive Date: 20111109
  Receipt Date: 20111109
  Transmission Date: 20120403
  Serious: Yes (Other)
  Sender: FDA-Public Use
  Company Number: None

PATIENT
  Sex: Female

DRUGS (2)
  1. INTUNIV [Suspect]
     Indication: AFFECTIVE DISORDER
     Dosage: 2 MG ONCE A DAY
     Dates: start: 20111007, end: 20111014
  2. INTUNIV [Suspect]
     Indication: TIC

REACTIONS (2)
  - TIC [None]
  - CONDITION AGGRAVATED [None]
